FAERS Safety Report 10792433 (Version 2)
Quarter: 2015Q1

REPORT INFORMATION
  Report Type: Report from Study
  Country: KR (occurrence: KR)
  Receive Date: 20150213
  Receipt Date: 20150304
  Transmission Date: 20150721
  Serious: Yes (Death, Other)
  Sender: FDA-Public Use
  Company Number: KR-PFIZER INC-2015056752

PATIENT

DRUGS (3)
  1. FLUOROURACIL. [Suspect]
     Active Substance: FLUOROURACIL
     Indication: BILE DUCT CANCER
     Dosage: 1000 MG/M2, CYCLIC (DAILY AS A CONTINUOUS INFUSION FROM DAY 1 TO DAY 3)
     Route: 041
  2. CISPLATIN. [Suspect]
     Active Substance: CISPLATIN
     Indication: BILE DUCT CANCER
     Dosage: 60 MG/M2, CYCLIC (ON DAY 1)
  3. EPIRUBICIN HCL [Suspect]
     Active Substance: EPIRUBICIN HYDROCHLORIDE
     Indication: BILE DUCT CANCER
     Dosage: 50 MG/M2, CYCLIC (ON DAY 1)

REACTIONS (2)
  - Febrile neutropenia [Unknown]
  - Septic shock [Fatal]
